FAERS Safety Report 5562067-7 (Version None)
Quarter: 2007Q4

REPORT INFORMATION
  Report Type: 
  Country: None (occurrence: None)
  Receive Date: 20071215
  Receipt Date: 20071001
  Transmission Date: 20080405
  Serious: No
  Sender: FDA-Public Use
  Company Number: US-AMGEN-KDL245796

PATIENT
  Sex: Male

DRUGS (2)
  1. ENBREL [Suspect]
     Indication: RHEUMATOID ARTHRITIS
     Dates: start: 20070201
  2. METHOTREXATE [Concomitant]
     Dates: start: 20070901

REACTIONS (2)
  - INJECTION SITE ERYTHEMA [None]
  - INJECTION SITE LACERATION [None]
